FAERS Safety Report 6285066-9 (Version None)
Quarter: 2009Q3

REPORT INFORMATION
  Report Type: 
  Country: None (occurrence: None)
  Receive Date: 20090727
  Receipt Date: 20090717
  Transmission Date: 20100115
  Serious: Yes (Other)
  Sender: FDA-Public Use
  Company Number: DE-ABBOTT-09P-062-0586424-00

PATIENT
  Sex: Female

DRUGS (4)
  1. HUMIRA [Suspect]
     Indication: PSORIATIC ARTHROPATHY
     Route: 058
     Dates: start: 20081115
  2. OXIGESIC (NON-ABBOTT) [Suspect]
     Indication: PROSTATIC SPECIFIC ANTIGEN
  3. CORTISONE [Concomitant]
     Indication: PSORIATIC ARTHROPATHY
  4. ARAVA [Concomitant]
     Indication: PSORIATIC ARTHROPATHY

REACTIONS (1)
  - JAW OPERATION [None]
